FAERS Safety Report 16776097 (Version 1)
Quarter: 2019Q3

REPORT INFORMATION
  Report Type: Spontaneous
  Country: BO (occurrence: BO)
  Receive Date: 20190905
  Receipt Date: 20190905
  Transmission Date: 20191005
  Serious: Yes (Hospitalization, Other)
  Sender: FDA-Public Use
  Company Number: BO-JNJFOC-20190837523

PATIENT
  Age: 55 Year
  Sex: Female
  Weight: 170 kg

DRUGS (2)
  1. DARZALEX [Suspect]
     Active Substance: DARATUMUMAB
     Indication: PRODUCT USED FOR UNKNOWN INDICATION
     Dosage: 2 OF 400 MILLIGRAMS
     Route: 065
  2. DARZALEX [Suspect]
     Active Substance: DARATUMUMAB
     Dosage: 2 OF 100 MILLIGRAMS
     Route: 065
     Dates: start: 20190824

REACTIONS (7)
  - Oxygen saturation decreased [Unknown]
  - Incorrect dose administered [Unknown]
  - Laryngeal oedema [Unknown]
  - Off label use [Unknown]
  - Conjunctival oedema [Unknown]
  - Pulmonary oedema [Unknown]
  - Infusion related reaction [Unknown]

NARRATIVE: CASE EVENT DATE: 20190824
